FAERS Safety Report 23641156 (Version 1)
Quarter: 2024Q1

REPORT INFORMATION
  Report Type: Report from Study
  Country: US (occurrence: US)
  Receive Date: 20240318
  Receipt Date: 20240318
  Transmission Date: 20240410
  Serious: Yes (Hospitalization, Other)
  Sender: FDA-Public Use
  Company Number: US-GILEAD-2024-0665873

PATIENT
  Age: 20 Year
  Sex: Female

DRUGS (11)
  1. AZTREONAM LYSINE [Suspect]
     Active Substance: AZTREONAM LYSINE
     Indication: Cystic fibrosis
     Dosage: UNK UNK, TID, 1 VIAL NEBULIZER FOR 28 DAYS ON AND 28 DAY OFF
     Route: 055
     Dates: start: 20190523
  2. HYPROMELLOSE, UNSPECIFIED [Concomitant]
     Active Substance: HYPROMELLOSE, UNSPECIFIED
     Dosage: UNK
  3. AZELASTINE [Concomitant]
     Active Substance: AZELASTINE\AZELASTINE HYDROCHLORIDE
  4. BACLOFEN [Concomitant]
     Active Substance: BACLOFEN
  5. CALCIUM [Concomitant]
     Active Substance: CALCIUM
  6. CETIRIZINE [Concomitant]
     Active Substance: CETIRIZINE HYDROCHLORIDE
  7. LACTINEX [LACTOBACILLUS ACIDOPHILUS] [Concomitant]
  8. ONFI [Concomitant]
     Active Substance: CLOBAZAM
  9. VALIUM [Concomitant]
     Active Substance: DIAZEPAM
  10. ZONEGRAN [Concomitant]
     Active Substance: ZONISAMIDE
  11. VITAMIN D3 [Concomitant]
     Active Substance: CHOLECALCIFEROL

REACTIONS (2)
  - Seizure [Unknown]
  - Pneumonia [Unknown]
